FAERS Safety Report 8625925-2 (Version None)
Quarter: 2012Q3

REPORT INFORMATION
  Report Type: 
  Country: None (occurrence: None)
  Receive Date: 20120827
  Receipt Date: 20120816
  Transmission Date: 20120928
  Serious: Yes (Life-Threatening, Hospitalization)
  Sender: FDA-Public Use
  Company Number: CH-TEVA-355162ISR

PATIENT
  Age: 46 Year
  Sex: Female

DRUGS (7)
  1. NOPIL FORTE [Suspect]
     Indication: PYELONEPHRITIS
     Dosage: 1920 MILLIGRAM DAILY;
     Route: 048
     Dates: start: 20120724
  2. DOLOCYL [Concomitant]
  3. PERENTEROL [Concomitant]
     Dosage: 250 MILLIGRAM DAILY;
     Route: 048
     Dates: start: 20120727
  4. DIPYRONE TAB [Concomitant]
     Dosage: 1500 MILLIGRAM DAILY;
     Dates: start: 20120726
  5. MEPHADOLOR 500 NEO [Concomitant]
     Dates: start: 20120724
  6. ACETALGIN 500 MG [Concomitant]
     Dates: start: 20120726
  7. OMEZOL-MEPHA MT [Concomitant]
     Dosage: 40 MILLIGRAM DAILY;
     Dates: start: 20120726

REACTIONS (8)
  - VOMITING [None]
  - HYPONATRAEMIA [None]
  - SOMNOLENCE [None]
  - INAPPROPRIATE ANTIDIURETIC HORMONE SECRETION [None]
  - AGITATION [None]
  - TUBULOINTERSTITIAL NEPHRITIS [None]
  - POLYURIA [None]
  - PNEUMONIA ASPIRATION [None]
